FAERS Safety Report 23839714 (Version 2)
Quarter: 2024Q2

REPORT INFORMATION
  Report Type: Report from Study
  Country: CA (occurrence: CA)
  Receive Date: 20240510
  Receipt Date: 20240612
  Transmission Date: 20240715
  Serious: Yes (Other)
  Sender: FDA-Public Use
  Company Number: CA-JNJFOC-20240282672

PATIENT
  Age: 32 Year
  Sex: Female

DRUGS (1)
  1. REMICADE [Suspect]
     Active Substance: INFLIXIMAB
     Indication: Crohn^s disease
     Dosage: EXPIRY: JUN-2026 (V2)
     Route: 041
     Dates: end: 20240227

REACTIONS (6)
  - Cystitis [Not Recovered/Not Resolved]
  - Pseudomonas infection [Unknown]
  - Infected cyst [Recovering/Resolving]
  - Inflammation [Unknown]
  - Staphylococcal infection [Unknown]
  - Skin disorder [Unknown]

NARRATIVE: CASE EVENT DATE: 20231211
